FAERS Safety Report 8539651-1 (Version None)
Quarter: 2012Q3

REPORT INFORMATION
  Report Type: 
  Country: None (occurrence: None)
  Receive Date: 20120726
  Receipt Date: 20120717
  Transmission Date: 20120928
  Serious: Yes (Hospitalization, Other)
  Sender: FDA-Public Use
  Company Number: US-ASTRAZENECA-2012SE42664

PATIENT
  Age: 24333 Day
  Sex: Male
  Weight: 82.6 kg

DRUGS (25)
  1. FLONASE [Concomitant]
     Dosage: TWO TIMES A DAY
  2. LOPID [Concomitant]
  3. VALIUM [Concomitant]
  4. LOVASTATINE [Concomitant]
  5. LOITAK [Concomitant]
  6. MAGOX [Concomitant]
  7. IMDUR [Concomitant]
  8. NEURONTIN [Concomitant]
  9. ASPIRIN [Concomitant]
  10. INSULIN [Concomitant]
  11. NEXIUM [Suspect]
     Indication: GASTROOESOPHAGEAL REFLUX DISEASE
     Route: 048
  12. SEROQUEL [Suspect]
     Indication: SLEEP DISORDER
     Route: 048
  13. CREON [Concomitant]
  14. ASPIRIN [Concomitant]
  15. SYNTHROID [Concomitant]
     Indication: THYROID DISORDER
  16. VITAMIN D [Concomitant]
  17. DIAZEPAM [Concomitant]
  18. HYDROCODONE [Concomitant]
  19. DIGOXIN [Concomitant]
  20. LEVOTHYROXINE SODIUM [Concomitant]
  21. LISINOPRIL [Suspect]
     Route: 048
  22. DUTOPROL XL [Concomitant]
  23. ISOSORBIDE [Concomitant]
  24. BETAPACE [Concomitant]
  25. PLAVIX [Concomitant]

REACTIONS (21)
  - FALL [None]
  - HEADACHE [None]
  - CEREBROVASCULAR ACCIDENT [None]
  - ATRIAL FIBRILLATION [None]
  - ATRIAL FLUTTER [None]
  - ABDOMINAL PAIN [None]
  - VISION BLURRED [None]
  - OFF LABEL USE [None]
  - ANXIETY [None]
  - HEART RATE IRREGULAR [None]
  - DIZZINESS [None]
  - COGNITIVE DISORDER [None]
  - PAIN IN EXTREMITY [None]
  - HAEMORRHAGIC STROKE [None]
  - VISUAL IMPAIRMENT [None]
  - NEUROPATHY PERIPHERAL [None]
  - PAIN [None]
  - HEART RATE INCREASED [None]
  - TYPE 2 DIABETES MELLITUS [None]
  - BACK INJURY [None]
  - HAEMOGLOBIN DECREASED [None]
